FAERS Safety Report 8943724 (Version 1)
Quarter: 2012Q4

REPORT INFORMATION
  Report Type: 
  Country: US (occurrence: US)
  Receive Date: 20121203
  Receipt Date: 20121203
  Transmission Date: 20130627
  Serious: Yes (Hospitalization)
  Sender: FDA-Public Use
  Company Number: US-GLAXOSMITHKLINE-A0874914A

PATIENT
  Sex: Male

DRUGS (1)
  1. AVANDIA [Suspect]
     Indication: DIABETES MELLITUS
     Dosage: 8MG Per day
     Route: 048
     Dates: start: 2000, end: 2007

REACTIONS (5)
  - Heart rate irregular [Not Recovered/Not Resolved]
  - Ventricular tachycardia [Unknown]
  - Fluid retention [Unknown]
  - Myocardial infarction [Unknown]
  - Weight increased [Unknown]
